FAERS Safety Report 11780915 (Version 2)
Quarter: 2015Q4

REPORT INFORMATION
  Report Type: Spontaneous
  Country: US (occurrence: US)
  Receive Date: 20151126
  Receipt Date: 20151215
  Transmission Date: 20160305
  Serious: No
  Sender: FDA-Public Use
  Company Number: US-TEVA-612433ACC

PATIENT
  Age: 26 Year
  Sex: Female
  Weight: 52.21 kg

DRUGS (1)
  1. PLAN B ONE-STEP [Suspect]
     Active Substance: LEVONORGESTREL
     Indication: POST COITAL CONTRACEPTION
     Dates: start: 20151023, end: 20151023

REACTIONS (10)
  - Menstruation delayed [Recovered/Resolved]
  - Menorrhagia [Recovered/Resolved]
  - Fatigue [Recovered/Resolved]
  - Dizziness [Recovered/Resolved]
  - Headache [Recovered/Resolved]
  - Nausea [Recovered/Resolved]
  - Pain [Recovered/Resolved]
  - Vaginal haemorrhage [Recovered/Resolved]
  - Breast tenderness [Not Recovered/Not Resolved]
  - Dysmenorrhoea [Recovered/Resolved]

NARRATIVE: CASE EVENT DATE: 20151023
